FAERS Safety Report 16212102 (Version 4)
Quarter: 2022Q1

REPORT INFORMATION
  Report Type: Spontaneous
  Country: CH (occurrence: CH)
  Receive Date: 20190418
  Receipt Date: 20220131
  Transmission Date: 20220423
  Serious: Yes (Hospitalization)
  Sender: FDA-Public Use
  Company Number: CH-SM-2019-12325

PATIENT
  Age: 48 Year
  Sex: Female

DRUGS (38)
  1. FLUDARABINE [Suspect]
     Active Substance: FLUDARABINE PHOSPHATE
     Dates: start: 20190313, end: 20190316
  2. MYCOPHENOLATE MOFETIL [Suspect]
     Active Substance: MYCOPHENOLATE MOFETIL
     Dates: start: 20190323
  3. VANCOMYCIN [Suspect]
     Active Substance: VANCOMYCIN
     Dates: start: 20190323, end: 20190325
  4. VANCOMYCIN [Suspect]
     Active Substance: VANCOMYCIN
     Dates: start: 20190405
  5. ONDANSETRON [Suspect]
     Active Substance: ONDANSETRON
     Route: 042
     Dates: start: 20190313, end: 20190326
  6. ONDANSETRON [Suspect]
     Active Substance: ONDANSETRON
     Dates: start: 20190328
  7. ACYCLOVIR [Suspect]
     Active Substance: ACYCLOVIR
     Dates: start: 20190319, end: 20190326
  8. FLUCONAZOLE [Suspect]
     Active Substance: FLUCONAZOLE
     Dosage: IN TOTAL
     Dates: start: 20190326, end: 20190326
  9. FLUCONAZOLE [Suspect]
     Active Substance: FLUCONAZOLE
     Dates: start: 20190405
  10. TORSEMIDE [Suspect]
     Active Substance: TORSEMIDE
     Dates: start: 20190307, end: 20190326
  11. TORSEMIDE [Suspect]
     Active Substance: TORSEMIDE
     Dates: start: 20190327
  12. PREGABALIN [Suspect]
     Active Substance: PREGABALIN
     Dosage: IN TOTAL
     Dates: start: 20190326, end: 20190326
  13. DEXAMETHASONE [Suspect]
     Active Substance: DEXAMETHASONE
     Route: 042
     Dates: start: 20190321, end: 20190324
  14. TREOSULFAN [Suspect]
     Active Substance: TREOSULFAN
     Dates: start: 20190313, end: 20190315
  15. BACTRIM [Suspect]
     Active Substance: SULFAMETHOXAZOLE\TRIMETHOPRIM
     Dosage: IN TOTAL
     Dates: start: 20190320, end: 20190320
  16. BACTRIM [Suspect]
     Active Substance: SULFAMETHOXAZOLE\TRIMETHOPRIM
     Dosage: IN TOTAL
     Dates: start: 20190322, end: 20190322
  17. BACTRIM [Suspect]
     Active Substance: SULFAMETHOXAZOLE\TRIMETHOPRIM
  18. BACTRIM [Suspect]
     Active Substance: SULFAMETHOXAZOLE\TRIMETHOPRIM
     Dates: start: 20190404
  19. NEXIUM [Suspect]
     Active Substance: ESOMEPRAZOLE MAGNESIUM
     Route: 042
     Dates: start: 20190319, end: 20190326
  20. NEXIUM [Suspect]
     Active Substance: ESOMEPRAZOLE MAGNESIUM
     Dates: start: 20190328
  21. NYSTATIN [Suspect]
     Active Substance: NYSTATIN
     Dates: start: 20190306, end: 20190326
  22. METOCLOPRAMIDE [Suspect]
     Active Substance: METOCLOPRAMIDE
     Dates: start: 20190314, end: 20190326
  23. METOCLOPRAMIDE [Suspect]
     Active Substance: METOCLOPRAMIDE
     Dates: start: 20190401
  24. CYCLOPHOSPHAMIDE [Suspect]
     Active Substance: CYCLOPHOSPHAMIDE
     Dates: start: 20190321, end: 20190323
  25. TACROLIMUS [Suspect]
     Active Substance: TACROLIMUS
     Route: 041
     Dates: start: 20190323
  26. NEUPOGEN [Suspect]
     Active Substance: FILGRASTIM
     Route: 042
     Dates: start: 20190323
  27. CALCIUM GLUCONATE [Suspect]
     Active Substance: CALCIUM GLUCONATE
     Route: 042
     Dates: start: 20190322, end: 20190326
  28. DOXYLAMINE\FOLIC ACID\PYRIDOXINE [Suspect]
     Active Substance: DOXYLAMINE\FOLIC ACID\PYRIDOXINE
     Dates: start: 20190317, end: 20190326
  29. MORPHINE [Suspect]
     Active Substance: MORPHINE
     Route: 041
     Dates: start: 20190325, end: 20190326
  30. MORPHINE [Suspect]
     Active Substance: MORPHINE
     Dates: start: 20190406
  31. URSODIOL [Suspect]
     Active Substance: URSODIOL
     Dates: start: 20190306, end: 20190326
  32. URSODIOL [Suspect]
     Active Substance: URSODIOL
     Dates: start: 20190401
  33. EMEND [Suspect]
     Active Substance: APREPITANT
     Dates: start: 20190314, end: 20190326
  34. PERFALGAN [Suspect]
     Active Substance: ACETAMINOPHEN
     Route: 042
     Dates: start: 20190307, end: 20190307
  35. PERFALGAN [Suspect]
     Active Substance: ACETAMINOPHEN
     Dates: start: 20190318, end: 20190318
  36. PERFALGAN [Suspect]
     Active Substance: ACETAMINOPHEN
     Dates: start: 20190325, end: 20190325
  37. PERFALGAN [Suspect]
     Active Substance: ACETAMINOPHEN
     Dates: start: 20190406
  38. MESNA [Suspect]
     Active Substance: MESNA
     Dates: start: 20190321, end: 20190323

REACTIONS (2)
  - Toxic epidermal necrolysis [Recovered/Resolved]
  - Pruritus [Not Recovered/Not Resolved]

NARRATIVE: CASE EVENT DATE: 20190317
